FAERS Safety Report 11039103 (Version 2)
Quarter: 2015Q2

REPORT INFORMATION
  Report Type: Report from Study
  Country: MX (occurrence: MX)
  Receive Date: 20150416
  Receipt Date: 20150427
  Transmission Date: 20150821
  Serious: Yes (Life-Threatening, Other)
  Sender: FDA-Public Use
  Company Number: MX-ASTELLAS-2010US002444

PATIENT
  Age: 52 Year
  Sex: Male

DRUGS (7)
  1. BLINDED ISAVUCONAZOLE [Suspect]
     Active Substance: ISAVUCONAZOLE
     Indication: SYSTEMIC CANDIDA
     Dosage: 50-200  THRICE DAILY
     Route: 042
     Dates: start: 20081019, end: 20081021
  2. CIPROFLOXACIN. [Concomitant]
     Active Substance: CIPROFLOXACIN
     Indication: MEDIASTINITIS
     Dosage: UNK, UNKNOWN FREQ.
     Route: 042
     Dates: start: 20081007, end: 20081018
  3. VANCOMYCIN [Concomitant]
     Active Substance: VANCOMYCIN
     Indication: MEDIASTINITIS
     Dosage: UNK, UNKNOWN FREQ.
     Route: 042
     Dates: start: 20081001, end: 20081018
  4. BLINDED ISAVUCONAZOLE [Suspect]
     Active Substance: ISAVUCONAZOLE
     Route: 042
     Dates: start: 20081021, end: 20081107
  5. AMIKACIN [Concomitant]
     Active Substance: AMIKACIN
     Indication: MEDIASTINITIS
     Route: 042
     Dates: start: 20081024, end: 20081106
  6. CIPROFLOXACIN. [Concomitant]
     Active Substance: CIPROFLOXACIN
     Dosage: 500 MG, Q12 HOURS
     Route: 048
  7. TIENAM [Concomitant]
     Active Substance: CILASTATIN SODIUM\IMIPENEM
     Indication: MEDIASTINITIS
     Route: 042
     Dates: start: 20081024, end: 20081107

REACTIONS (2)
  - Sepsis [Recovered/Resolved]
  - Infected skin ulcer [Recovered/Resolved]

NARRATIVE: CASE EVENT DATE: 20081106
